FAERS Safety Report 19142357 (Version 2)
Quarter: 2021Q2

REPORT INFORMATION
  Report Type: Spontaneous
  Country: US (occurrence: US)
  Receive Date: 20210416
  Receipt Date: 20210531
  Transmission Date: 20210717
  Serious: Yes (Other)
  Sender: FDA-Public Use
  Company Number: US-BEH-2021130333

PATIENT
  Age: 32 Year
  Sex: Female

DRUGS (4)
  1. BERINERT [Suspect]
     Active Substance: HUMAN C1-ESTERASE INHIBITOR
     Indication: PROPHYLAXIS
     Dosage: 2000 INTERNATIONAL UNIT, QD
     Route: 042
     Dates: start: 20161122
  2. BERINERT [Suspect]
     Active Substance: HUMAN C1-ESTERASE INHIBITOR
     Indication: HEREDITARY ANGIOEDEMA
     Dosage: 2000 INTERNATIONAL UNIT, PRN
     Route: 042
     Dates: start: 201708
  3. BERINERT [Suspect]
     Active Substance: HUMAN C1-ESTERASE INHIBITOR
     Indication: PROPHYLAXIS
     Dosage: 2000 INTERNATIONAL UNIT, QD
     Route: 042
     Dates: start: 20161122
  4. BERINERT [Suspect]
     Active Substance: HUMAN C1-ESTERASE INHIBITOR
     Indication: HEREDITARY ANGIOEDEMA
     Dosage: 2000 INTERNATIONAL UNIT, PRN
     Route: 042
     Dates: start: 201708

REACTIONS (4)
  - Hereditary angioedema [Unknown]
  - No adverse event [Unknown]
  - Hereditary angioedema [Recovered/Resolved]
  - Off label use [Unknown]
